FAERS Safety Report 17915112 (Version 2)
Quarter: 2020Q3

REPORT INFORMATION
  Report Type: Spontaneous
  Country: CA (occurrence: CA)
  Receive Date: 20200618
  Receipt Date: 20200706
  Transmission Date: 20201103
  Serious: Yes (Disabling, Other)
  Sender: FDA-Public Use
  Company Number: CA-AUROBINDO-AUR-APL-2020-029502

PATIENT
  Age: 69 Year
  Sex: Male
  Weight: 74.83 kg

DRUGS (1)
  1. AURO?VALSARTAN TABLET [Suspect]
     Active Substance: VALSARTAN
     Indication: HYPERTENSION
     Dosage: 80 MILLIGRAM, ONCE A DAY
     Route: 048

REACTIONS (3)
  - Erectile dysfunction [Recovered/Resolved]
  - Therapeutic product effect incomplete [Recovered/Resolved]
  - Headache [Recovered/Resolved]
